FAERS Safety Report 5141878-6 (Version None)
Quarter: 2006Q4

REPORT INFORMATION
  Report Type: 
  Country: None (occurrence: None)
  Receive Date: 20061027
  Receipt Date: 20061016
  Transmission Date: 20070319
  Serious: Yes (Hospitalization, Other)
  Sender: FDA-Public Use
  Company Number: L06-ESP-04325-01

PATIENT
  Age: 61 Year
  Sex: Female

DRUGS (6)
  1. CARBAMAZEPINE [Suspect]
     Indication: NEURALGIA
     Dosage: 1200 MG
  2. METHADONE HCL [Suspect]
     Indication: BONE PAIN
     Dosage: 75 MG
  3. METHADONE HCL [Suspect]
     Indication: BONE PAIN
     Dosage: 210 MG
  4. METHADONE HCL [Suspect]
     Indication: BONE PAIN
     Dosage: 160 MG
  5. METHADONE HCL [Suspect]
     Indication: BONE PAIN
     Dosage: 120 MG
  6. GABAPENTIN [Concomitant]

REACTIONS (7)
  - BONE PAIN [None]
  - DRUG INTERACTION [None]
  - DRUG TOXICITY [None]
  - LOSS OF CONSCIOUSNESS [None]
  - OXYGEN SATURATION DECREASED [None]
  - RESPIRATORY DEPRESSION [None]
  - SEDATION [None]
